FAERS Safety Report 8818670 (Version 2)
Quarter: 2012Q4

REPORT INFORMATION
  Report Type: 
  Country: JP (occurrence: JP)
  Receive Date: 20121001
  Receipt Date: 20121010
  Transmission Date: 20130627
  Serious: Yes (Hospitalization)
  Sender: FDA-Public Use
  Company Number: PHHO2012JP014090

PATIENT
  Age: 45 Year
  Sex: Female
  Weight: 49 kg

DRUGS (8)
  1. TASIGNA [Suspect]
     Indication: CHRONIC MYELOID LEUKAEMIA
     Dosage: 600 mg, daily
     Route: 048
     Dates: start: 20111110
  2. CELESTAMINE [Suspect]
     Indication: RASH
     Dosage: 4 DF, daily
     Route: 048
     Dates: start: 20060106
  3. LASIX [Suspect]
     Indication: OEDEMA PERIPHERAL
     Dosage: 20 mg, daily
     Route: 048
     Dates: start: 20100826
  4. ADALAT [Concomitant]
     Indication: HYPERTENSION
     Dosage: UNK
  5. CALONAL [Concomitant]
     Indication: HEADACHE
     Dosage: UNK
  6. CRESTOR [Concomitant]
     Indication: HYPERLIPIDAEMIA
     Dosage: UNK
     Dates: start: 20120925
  7. AMLODIN [Concomitant]
     Indication: BLOOD PRESSURE
     Dosage: 5 mg, Q5H
  8. LOXONIN [Concomitant]
     Indication: HEADACHE
     Dosage: UNK

REACTIONS (1)
  - Cerebral infarction [Recovered/Resolved]
